FAERS Safety Report 4910890-1 (Version None)
Quarter: 2006Q1

REPORT INFORMATION
  Report Type: 
  Country: None (occurrence: None)
  Receive Date: 20060214
  Receipt Date: 20051109
  Transmission Date: 20060701
  Serious: Yes (Death)
  Sender: FDA-Public Use
  Company Number: US-KINGPHARMUSA00001-K200501455

PATIENT
  Sex: Male

DRUGS (10)
  1. ALTACE [Suspect]
     Dosage: 2.5 MG, QD
     Route: 048
     Dates: start: 20001023, end: 20031201
  2. FUROSEMIDE [Suspect]
     Dosage: 40 MG, QD
     Dates: start: 20011129, end: 20031201
  3. PREDNISOLONE [Suspect]
     Dosage: 3 MG, QD
     Route: 048
     Dates: end: 20031201
  4. SALBUTAMOL [Suspect]
     Dosage: 5MG/2.5ML, QID
     Dates: start: 20000606, end: 20031201
  5. BECLOMETHASONE AQUEOUS [Suspect]
     Dosage: 1500 UG, QD
     Dates: end: 20031201
  6. UNIPHYLLIN ^MUNDIPHARMA^ [Suspect]
     Dosage: 400 MG, Q12HOUR
     Route: 048
     Dates: end: 20031201
  7. TIOTROPIUM BROMIDE [Suspect]
     Dosage: 18 UG, QD
     Dates: start: 20030115, end: 20031201
  8. WARFARIN [Suspect]
     Dosage: 3 MG, QD
     Dates: start: 20000418, end: 20031201
  9. SALBUTAMOL [Concomitant]
     Dosage: 300 MG, UNK
  10. ENSURE PLUS [Concomitant]

REACTIONS (1)
  - CHRONIC OBSTRUCTIVE PULMONARY DISEASE [None]
